FAERS Safety Report 22888197 (Version 3)
Quarter: 2024Q1

REPORT INFORMATION
  Report Type: Spontaneous
  Country: AU (occurrence: AU)
  Receive Date: 20230831
  Receipt Date: 20240313
  Transmission Date: 20240409
  Serious: Yes (Other)
  Sender: FDA-Public Use
  Company Number: AU-VERTEX PHARMACEUTICALS-2023-012667

PATIENT
  Sex: Female

DRUGS (2)
  1. TRIKAFTA [Suspect]
     Active Substance: ELEXACAFTOR\IVACAFTOR\TEZACAFTOR
     Indication: Cystic fibrosis
     Dosage: UNK
     Route: 048
  2. OMEPRAZOLE [Concomitant]
     Active Substance: OMEPRAZOLE

REACTIONS (12)
  - Visual impairment [Unknown]
  - Idiopathic intracranial hypertension [Unknown]
  - Malaise [Not Recovered/Not Resolved]
  - Lower respiratory tract infection [Unknown]
  - Illness [Unknown]
  - Mental disorder [Unknown]
  - Ear infection [Unknown]
  - Sinusitis [Unknown]
  - Weight increased [Unknown]
  - General physical health deterioration [Unknown]
  - Gastrointestinal disorder [Unknown]
  - Hypovitaminosis [Not Recovered/Not Resolved]
